FAERS Safety Report 22289745 (Version 1)
Quarter: 2023Q2

REPORT INFORMATION
  Report Type: Spontaneous
  Country: US (occurrence: None)
  Receive Date: 20230504
  Receipt Date: 20230504
  Transmission Date: 20230721
  Serious: No
  Sender: FDA-Public Use
  Company Number: None

PATIENT
  Age: 47 Year
  Sex: Female
  Weight: 84.6 kg

DRUGS (5)
  1. FLUCONAZOLE [Suspect]
     Active Substance: FLUCONAZOLE
     Indication: Vulvovaginal mycotic infection
     Dosage: OTHER QUANTITY : 3 TABLET(S);?OTHER FREQUENCY : 72 HOUR;?
     Route: 048
     Dates: start: 20230502
  2. SOOLANTRA [Concomitant]
     Active Substance: IVERMECTIN
  3. METRONIDAZOLE [Concomitant]
     Active Substance: METRONIDAZOLE
  4. topical fave creams [Concomitant]
  5. topical fave ointments [Concomitant]

REACTIONS (3)
  - Rash [None]
  - Pruritus [None]
  - Dizziness [None]

NARRATIVE: CASE EVENT DATE: 20230503
